FAERS Safety Report 25024439 (Version 1)
Quarter: 2025Q1

REPORT INFORMATION
  Report Type: Report from Study
  Country: US (occurrence: US)
  Receive Date: 20250228
  Receipt Date: 20250228
  Transmission Date: 20250408
  Serious: Yes (Death)
  Sender: BAUSCH AND LOMB
  Company Number: US-BAUSCH-BL-2025-002609

PATIENT
  Age: 69 Year
  Sex: Male

DRUGS (1)
  1. XIFAXAN [Suspect]
     Active Substance: RIFAXIMIN
     Indication: Product used for unknown indication
     Dosage: 550 MG BID
     Route: 065

REACTIONS (1)
  - Death [Fatal]
